FAERS Safety Report 20430837 (Version 2)
Quarter: 2024Q3

REPORT INFORMATION
  Report Type: Report from Study
  Country: US (occurrence: FR)
  Receive Date: 20220204
  Receipt Date: 20240820
  Transmission Date: 20241017
  Serious: Yes (Life-Threatening, Hospitalization)
  Sender: SERVIER
  Company Number: US-SERVIER-S21006874

PATIENT

DRUGS (8)
  1. PEGASPARGASE [Suspect]
     Active Substance: PEGASPARGASE
     Indication: Acute lymphocytic leukaemia
     Dosage: 1680 IU, ON DAY 4
     Route: 042
     Dates: start: 20210515
  2. VINCRISTINE SULFATE [Suspect]
     Active Substance: VINCRISTINE SULFATE
     Indication: Acute lymphocytic leukaemia
     Dosage: 1 MG, ON DAYS 1, 8, AND 15
     Route: 042
     Dates: start: 20210512, end: 20210526
  3. DOXORUBICIN [Suspect]
     Active Substance: DOXORUBICIN
     Indication: Acute lymphocytic leukaemia
     Dosage: 16.7 MG, ON DAYS 1, 8, AND 15
     Route: 042
     Dates: start: 20210512, end: 20210526
  4. METHOTREXATE SODIUM [Suspect]
     Active Substance: METHOTREXATE SODIUM
     Indication: Acute lymphocytic leukaemia
     Dosage: 12 MG, ON DAYS 4 AND 31
     Route: 037
     Dates: start: 20210515, end: 20210611
  5. CYCLOPHOSPHAMIDE [Suspect]
     Active Substance: CYCLOPHOSPHAMIDE
     Indication: Acute lymphocytic leukaemia
     Dosage: 670 MG, ON DAY 29
     Route: 042
     Dates: start: 20210609, end: 20210609
  6. CYTARABINE [Suspect]
     Active Substance: CYTARABINE
     Indication: Acute lymphocytic leukaemia
     Dosage: 50 MG, FROM DAY 31 TO 34 AND 38 TO 4 ^CUT TERM^
     Route: 042
     Dates: start: 20210611, end: 20210621
  7. DEXAMETHASONE [Suspect]
     Active Substance: DEXAMETHASONE
     Indication: Acute lymphocytic leukaemia
     Dosage: 6.7 MG, ON DAYS 1 TO 15
     Route: 048
     Dates: start: 20210512, end: 20210526
  8. THIOGUANINE [Suspect]
     Active Substance: THIOGUANINE
     Indication: Acute lymphocytic leukaemia
     Dosage: 20 MG, FROM DAY 29 TO 42
     Route: 048
     Dates: start: 20210609, end: 20210622

REACTIONS (2)
  - Ischaemic stroke [Recovered/Resolved]
  - Febrile bone marrow aplasia [Recovered/Resolved]

NARRATIVE: CASE EVENT DATE: 20210621
